FAERS Safety Report 7568693-8 (Version None)
Quarter: 2011Q2

REPORT INFORMATION
  Report Type: 
  Country: None (occurrence: None)
  Receive Date: 20110623
  Receipt Date: 20110608
  Transmission Date: 20111010
  Serious: Yes (Other)
  Sender: FDA-Public Use
  Company Number: US-ARROW GEN-2011-08069

PATIENT
  Sex: Female

DRUGS (5)
  1. ACTONEL [Suspect]
     Indication: OSTEOPOROSIS
     Dosage: ^USED AS PRESCRIBED AND IN A FORESEEABLE MANNER^
     Dates: start: 20010101, end: 20090301
  2. FOSAMAX PLUS D [Suspect]
     Indication: OSTEOPOROSIS
     Dosage: ^USED AS PRESCRIBED AND IN A FORESEEABLE MANNER^
     Dates: start: 20010101, end: 20090301
  3. BONIVA [Suspect]
     Indication: OSTEOPOROSIS
     Dosage: ^USED AS PRESCRIBED AND IN A FORESEEABLE MANNER^
     Dates: start: 20010101, end: 20090301
  4. ALENDRONATE SODIUM [Suspect]
     Indication: OSTEOPOROSIS
     Dosage: ^USED AS PRESCRIBED AND IN A FORESEEABLE MANNER^
     Route: 048
     Dates: start: 20010101, end: 20090301
  5. FOSAMAX [Suspect]
     Indication: OSTEOPOROSIS
     Dosage: ^USED AS PRESCRIBED AND IN A FORESEEABLE MANNER^
     Route: 048
     Dates: start: 20010101, end: 20090301

REACTIONS (3)
  - LOW TURNOVER OSTEOPATHY [None]
  - TOXICITY TO VARIOUS AGENTS [None]
  - FEMUR FRACTURE [None]
